FAERS Safety Report 5349730-8 (Version None)
Quarter: 2007Q2

REPORT INFORMATION
  Report Type: 
  Country: None (occurrence: None)
  Receive Date: 20070607
  Receipt Date: 20070604
  Transmission Date: 20071010
  Serious: Yes (Other)
  Sender: FDA-Public Use
  Company Number: BR-ASTRAZENECA-2007UW09368

PATIENT
  Age: 10 Year
  Sex: Female
  Weight: 37 kg

DRUGS (1)
  1. BUDECORT [Suspect]
     Route: 045
     Dates: start: 20060905, end: 20060905

REACTIONS (6)
  - ERYTHEMA [None]
  - PRURITUS [None]
  - RASH MACULO-PAPULAR [None]
  - STEVENS-JOHNSON SYNDROME [None]
  - SWELLING FACE [None]
  - WRONG DRUG ADMINISTERED [None]
